FAERS Safety Report 4304430-8 (Version None)
Quarter: 2004Q1

REPORT INFORMATION
  Report Type: 
  Country: None (occurrence: None)
  Receive Date: 20040224
  Receipt Date: 20040219
  Transmission Date: 20041129
  Serious: Yes (Other)
  Sender: FDA-Public Use
  Company Number: US-JNJFOC-20040204213

PATIENT
  Age: 62 Year
  Sex: Female

DRUGS (9)
  1. DURAGESIC [Suspect]
     Indication: CANCER PAIN
     Dosage: SEE IMAGE
     Route: 062
     Dates: start: 20040201, end: 20040214
  2. DURAGESIC [Suspect]
     Indication: CANCER PAIN
     Dosage: SEE IMAGE
     Route: 062
     Dates: start: 20030101
  3. DURAGESIC [Suspect]
     Indication: CANCER PAIN
     Dosage: SEE IMAGE
     Route: 062
     Dates: start: 20040214
  4. HERCEPTIN [Concomitant]
  5. REGLAN [Concomitant]
  6. OXYCODONE (OXYCODONE) [Concomitant]
  7. ALPRAZOLAM [Concomitant]
  8. VITAMIN C (ASCORBIC ACID) [Concomitant]
  9. ZOMETA [Concomitant]

REACTIONS (5)
  - BREAST CANCER METASTATIC [None]
  - DRUG INEFFECTIVE [None]
  - MALIGNANT NEOPLASM PROGRESSION [None]
  - NAUSEA [None]
  - VOMITING [None]
